FAERS Safety Report 23599458 (Version 1)
Quarter: 2024Q1

REPORT INFORMATION
  Report Type: Spontaneous
  Country: JP (occurrence: JP)
  Receive Date: 20240306
  Receipt Date: 20240306
  Transmission Date: 20240410
  Serious: Yes (Life-Threatening, Hospitalization, Other)
  Sender: FDA-Public Use
  Company Number: JP-MSD-2403JPN000185J

PATIENT
  Sex: Female

DRUGS (4)
  1. KEYTRUDA [Suspect]
     Active Substance: PEMBROLIZUMAB
     Indication: Uterine cancer
     Dosage: 200 MILLIGRAM, Q3W
     Route: 041
     Dates: end: 20230929
  2. LENVATINIB MESYLATE [Suspect]
     Active Substance: LENVATINIB MESYLATE
     Indication: Uterine cancer
     Dosage: UNK, QD
     Route: 048
     Dates: end: 20230929
  3. CARBOPLATIN [Concomitant]
     Active Substance: CARBOPLATIN
     Indication: Uterine cancer
     Dosage: UNK
     Route: 065
     Dates: end: 2024
  4. PACLITAXEL [Concomitant]
     Active Substance: PACLITAXEL
     Indication: Uterine cancer
     Dosage: UNK
     Route: 065
     Dates: end: 2024

REACTIONS (1)
  - Duodenal perforation [Recovered/Resolved]

NARRATIVE: CASE EVENT DATE: 20240130
